FAERS Safety Report 6304874-9 (Version None)
Quarter: 2009Q3

REPORT INFORMATION
  Report Type: 
  Country: None (occurrence: None)
  Receive Date: 20090811
  Receipt Date: 20090806
  Transmission Date: 20100115
  Serious: Yes (Other)
  Sender: FDA-Public Use
  Company Number: JP-BAYER-200912684BYL

PATIENT
  Age: 76 Year
  Sex: Male

DRUGS (7)
  1. NEXAVAR [Suspect]
     Indication: HEPATIC NEOPLASM MALIGNANT NON-RESECTABLE
     Dosage: TOTAL DAILY DOSE: 800 MG  UNIT DOSE: 200 MG
     Route: 048
     Dates: start: 20090705, end: 20090711
  2. GLAKAY [Concomitant]
     Dosage: TOTAL DAILY DOSE: 3 DF
     Route: 048
  3. UROCALUN [Concomitant]
     Dosage: TOTAL DAILY DOSE: 6 DF
     Route: 048
  4. URSO 250 [Concomitant]
     Dosage: TOTAL DAILY DOSE: 6 DF
     Route: 048
  5. MAGNESIUM OXIDE [Concomitant]
     Dosage: AS USED: 0.5 G
     Route: 048
  6. EVAMYL [Concomitant]
     Indication: INSOMNIA
     Route: 048
  7. JUZEN-TAIHO-TO [Concomitant]
     Dosage: TOTAL DAILY DOSE: 3 DF
     Route: 048

REACTIONS (3)
  - HEPATIC ENCEPHALOPATHY [None]
  - HYPERTENSION [None]
  - PALMAR-PLANTAR ERYTHRODYSAESTHESIA SYNDROME [None]
